FAERS Safety Report 8954126 (Version 1)
Quarter: 2012Q4

REPORT INFORMATION
  Report Type: 
  Country: US (occurrence: US)
  Receive Date: 20121207
  Receipt Date: 20121207
  Transmission Date: 20130627
  Serious: No
  Sender: FDA-Public Use
  Company Number: US-GLAXOSMITHKLINE-A0962472A

PATIENT
  Sex: Female

DRUGS (1)
  1. TOPOTECAN [Suspect]
     Indication: OVARIAN EPITHELIAL CANCER STAGE IV
     Dosage: 2MG Cyclic
     Route: 065

REACTIONS (5)
  - Blood test abnormal [Unknown]
  - White blood cell count decreased [Unknown]
  - Red blood cell count decreased [Unknown]
  - Platelet count decreased [Unknown]
  - Therapeutic response decreased [Unknown]
